FAERS Safety Report 7138827-8 (Version None)
Quarter: 2010Q4

REPORT INFORMATION
  Report Type: 
  Country: None (occurrence: None)
  Receive Date: 20101201
  Receipt Date: 20101201
  Transmission Date: 20110411
  Serious: Yes (Hospitalization)
  Sender: FDA-Public Use
  Company Number: None

PATIENT
  Sex: Female

DRUGS (11)
  1. NEULASTA [Suspect]
  2. MAGIC MOUTHWASH [Suspect]
     Indication: ODYNOPHAGIA
     Dosage: 40 ML PO
     Route: 048
     Dates: start: 20101114, end: 20101116
  3. PREDNISONE [Suspect]
     Indication: HYPERSENSITIVITY
     Dosage: 40 MG PO
     Route: 048
     Dates: start: 20101114, end: 20101114
  4. FLUCONAZOLE [Suspect]
     Indication: ORAL CANDIDIASIS
     Dosage: 200 MG PO
     Route: 048
     Dates: start: 20101115, end: 20101115
  5. ABRAXANE [Suspect]
  6. AVASTIN [Suspect]
     Dates: start: 20100524, end: 20100712
  7. CARBOPLATIN [Suspect]
     Dates: start: 20100524, end: 20100802
  8. PEG FILGRASTIM [Suspect]
     Dates: start: 20101110, end: 20101110
  9. ADRIAMYCIN PFS [Suspect]
     Indication: ORAL CANDIDIASIS
     Dates: start: 20101108, end: 20101108
  10. CYCLOPHOSPHAMIDE [Suspect]
     Indication: ORAL CANDIDIASIS
     Dosage: 1056 MG
     Dates: start: 20101108, end: 20101108
  11. PEG FILGRASTIM [Suspect]
     Dosage: 006 MG
     Dates: start: 20101110, end: 20101110

REACTIONS (5)
  - DRUG HYPERSENSITIVITY [None]
  - NEUTROPENIA [None]
  - ODYNOPHAGIA [None]
  - OROPHARYNGEAL PAIN [None]
  - URTICARIA [None]
